FAERS Safety Report 6063431-2 (Version None)
Quarter: 2009Q1

REPORT INFORMATION
  Report Type: 
  Country: None (occurrence: None)
  Receive Date: 20090203
  Receipt Date: 20090128
  Transmission Date: 20090719
  Serious: No
  Sender: FDA-Public Use
  Company Number: US-B.I. PHARMACEUTICALS,INC./RIDGEFIELD-2008-BP-18873PF

PATIENT
  Sex: Female

DRUGS (12)
  1. SPIRIVA [Suspect]
     Indication: ASTHMA
     Dosage: 36MCG
  2. AMBIEN CR [Concomitant]
  3. SYNTHROID [Concomitant]
  4. SINGULAIR [Concomitant]
  5. NEURONTIN [Concomitant]
  6. BACLOFEN [Concomitant]
  7. ARICEPT [Concomitant]
  8. MS CONTIN [Concomitant]
  9. ADDERALL 10 [Concomitant]
  10. ALBUTEROL [Concomitant]
  11. DITROPAN XL [Concomitant]
  12. CLACIUM ZINC MAGNESIUM [Concomitant]

REACTIONS (1)
  - WHEEZING [None]
